FAERS Safety Report 18940379 (Version 1)
Quarter: 2021Q1

REPORT INFORMATION
  Report Type: Spontaneous
  Country: US (occurrence: US)
  Receive Date: 20210225
  Receipt Date: 20210225
  Transmission Date: 20210420
  Serious: Yes (Hospitalization)
  Sender: FDA-Public Use
  Company Number: None

PATIENT
  Age: 82 Year
  Sex: Male
  Weight: 109.5 kg

DRUGS (6)
  1. DEXAMETHASONE. [Suspect]
     Active Substance: DEXAMETHASONE
     Dates: end: 20180624
  2. LENALIDOMIDE (CC?5013) [Suspect]
     Active Substance: LENALIDOMIDE
     Dates: end: 20180624
  3. COZAAR [Concomitant]
     Active Substance: LOSARTAN POTASSIUM
  4. VELCADE [Suspect]
     Active Substance: BORTEZOMIB
     Dates: end: 20180624
  5. NORVASC [Concomitant]
     Active Substance: AMLODIPINE BESYLATE
  6. LOPRESSOR [Concomitant]
     Active Substance: METOPROLOL TARTRATE

REACTIONS (7)
  - Syncope [None]
  - Urinary retention [None]
  - Urinary incontinence [None]
  - Dehydration [None]
  - Blood pressure systolic increased [None]
  - Unresponsive to stimuli [None]
  - Overdose [None]

NARRATIVE: CASE EVENT DATE: 20180625
